FAERS Safety Report 18307544 (Version 3)
Quarter: 2020Q4

REPORT INFORMATION
  Report Type: Report from Study
  Country: CA (occurrence: CA)
  Receive Date: 20200924
  Receipt Date: 20201020
  Transmission Date: 20210113
  Serious: Yes (Congenital Anomaly)
  Sender: FDA-Public Use
  Company Number: CA-TAKEDA-2020TUS039937

PATIENT
  Age: 38 Year
  Sex: Female
  Weight: 72.5 kg

DRUGS (2)
  1. VORTIOXETINE. [Suspect]
     Active Substance: VORTIOXETINE
     Indication: MAJOR DEPRESSION
     Dosage: 10 MILLIGRAM
     Route: 065
     Dates: start: 20200306, end: 20200510
  2. VORTIOXETINE. [Suspect]
     Active Substance: VORTIOXETINE
     Dosage: 20 MILLIGRAM
     Route: 065
     Dates: start: 20200511

REACTIONS (5)
  - Peripheral swelling [Not Recovered/Not Resolved]
  - Headache [Recovered/Resolved]
  - Vision blurred [Recovered/Resolved]
  - Muscle spasms [Recovered/Resolved]
  - Weight increased [Recovered/Resolved]

NARRATIVE: CASE EVENT DATE: 202003
